FAERS Safety Report 4664130-1 (Version None)
Quarter: 2005Q2

REPORT INFORMATION
  Report Type: 
  Country: None (occurrence: None)
  Receive Date: 20050516
  Receipt Date: 20050509
  Transmission Date: 20051028
  Serious: Yes (Hospitalization)
  Sender: FDA-Public Use
  Company Number: 200511941BCC

PATIENT
  Age: 57 Year
  Sex: Male
  Weight: 104.3273 kg

DRUGS (4)
  1. ALKA SELTZER [Suspect]
     Indication: DYSPEPSIA
     Dosage: 650 MG, QD, ORAL
     Route: 048
  2. ALKA SELTZER [Suspect]
     Indication: SLEEP DISORDER
     Dosage: 650 MG, QD, ORAL
     Route: 048
  3. UNKNOWN DRUG [Concomitant]
  4. KIRKLAND ASPIRIN [Concomitant]

REACTIONS (2)
  - MYOCARDIAL INFARCTION [None]
  - WEIGHT DECREASED [None]
